FAERS Safety Report 10921010 (Version 1)
Quarter: 2015Q1

REPORT INFORMATION
  Report Type: Spontaneous
  Country: IL (occurrence: IL)
  Receive Date: 20150317
  Receipt Date: 20150317
  Transmission Date: 20150721
  Serious: Yes (Other)
  Sender: FDA-Public Use
  Company Number: IL-ROCHE-1549835

PATIENT
  Age: 66 Year
  Sex: Male

DRUGS (1)
  1. XOLAIR [Suspect]
     Active Substance: OMALIZUMAB
     Indication: ASTHMA
     Route: 065
     Dates: start: 200911

REACTIONS (4)
  - Anaemia [Recovering/Resolving]
  - Colon neoplasm [Recovering/Resolving]
  - Small intestine carcinoma [Not Recovered/Not Resolved]
  - Nasal polyps [Recovering/Resolving]

NARRATIVE: CASE EVENT DATE: 201406
